FAERS Safety Report 9277285 (Version 1)
Quarter: 2013Q2

REPORT INFORMATION
  Report Type: Spontaneous
  Country: US (occurrence: US)
  Receive Date: 20130508
  Receipt Date: 20130508
  Transmission Date: 20140414
  Serious: No
  Sender: FDA-Public Use
  Company Number: US-009507513-1304USA017390

PATIENT
  Age: 22 Year
  Sex: Female
  Weight: 77.98 kg

DRUGS (4)
  1. NUVARING [Suspect]
     Indication: CONTRACEPTION
     Dosage: 1 DF, 3 WEEKS IN 1 WEEK OUT
     Route: 067
     Dates: start: 201301
  2. LEXAPRO [Concomitant]
  3. DORYX [Concomitant]
  4. CLONAZEPAM [Concomitant]
     Dosage: UNK, PRN

REACTIONS (3)
  - Fungal infection [Unknown]
  - Weight increased [Unknown]
  - Menstruation delayed [Unknown]
